FAERS Safety Report 5724241-6 (Version None)
Quarter: 2008Q2

REPORT INFORMATION
  Report Type: 
  Country: None (occurrence: None)
  Receive Date: 20080430
  Receipt Date: 20080418
  Transmission Date: 20081010
  Serious: Yes (Other)
  Sender: FDA-Public Use
  Company Number: US-PFIZER INC-2008034465

PATIENT
  Sex: Female
  Weight: 95.3 kg

DRUGS (7)
  1. LYRICA [Suspect]
     Indication: FIBROMYALGIA
     Route: 048
  2. TYLENOL [Concomitant]
  3. ANALGESICS [Concomitant]
  4. NOVOLIN [Concomitant]
  5. METFORMIN HCL [Concomitant]
  6. MIRAPEX [Concomitant]
  7. CARBIDOPA AND LEVODOPA [Concomitant]

REACTIONS (11)
  - ACTIVITIES OF DAILY LIVING IMPAIRED [None]
  - ARTHRALGIA [None]
  - DEPRESSION [None]
  - FEELING ABNORMAL [None]
  - HEADACHE [None]
  - INSOMNIA [None]
  - OEDEMA PERIPHERAL [None]
  - PAIN [None]
  - SEDATION [None]
  - SWELLING FACE [None]
  - WEIGHT INCREASED [None]
